FAERS Safety Report 7333927-1 (Version None)
Quarter: 2011Q1

REPORT INFORMATION
  Report Type: 
  Country: None (occurrence: None)
  Receive Date: 20110307
  Receipt Date: 20110223
  Transmission Date: 20110831
  Serious: Yes (Hospitalization)
  Sender: FDA-Public Use
  Company Number: US-BIOGENIDEC-2011BI007059

PATIENT
  Age: 69 Year
  Sex: Female
  Weight: 54 kg

DRUGS (1)
  1. AVONEX [Suspect]
     Indication: MULTIPLE SCLEROSIS
     Route: 030
     Dates: start: 20020227

REACTIONS (8)
  - RETCHING [None]
  - FALL [None]
  - MEMORY IMPAIRMENT [None]
  - CONCUSSION [None]
  - DIZZINESS [None]
  - CEREBRAL HAEMORRHAGE [None]
  - HEADACHE [None]
  - VOMITING [None]
